FAERS Safety Report 4783872-0 (Version None)
Quarter: 2005Q3

REPORT INFORMATION
  Report Type: 
  Country: None (occurrence: None)
  Receive Date: 20050929
  Receipt Date: 20050923
  Transmission Date: 20060218
  Serious: Yes (Hospitalization)
  Sender: FDA-Public Use
  Company Number: IL-MERCK-0509ISR00011

PATIENT
  Age: 68 Year
  Sex: Male

DRUGS (3)
  1. EMEND [Suspect]
     Indication: PROPHYLAXIS OF NAUSEA AND VOMITING
     Route: 048
     Dates: start: 20050913, end: 20050913
  2. EMEND [Suspect]
     Route: 048
     Dates: start: 20050914, end: 20050915
  3. ANTINEOPLASTIC (UNSPECIFIED) [Concomitant]
     Route: 065

REACTIONS (5)
  - ASTHENIA [None]
  - DEHYDRATION [None]
  - HYPONATRAEMIA [None]
  - RED BLOOD CELL COUNT DECREASED [None]
  - URINE OUTPUT INCREASED [None]
